FAERS Safety Report 21777840 (Version 1)
Quarter: 2022Q4

REPORT INFORMATION
  Report Type: Spontaneous
  Country: US (occurrence: None)
  Receive Date: 20221226
  Receipt Date: 20221226
  Transmission Date: 20230113
  Serious: No
  Sender: FDA-Public Use
  Company Number: 2022A398937

PATIENT
  Sex: Male

DRUGS (2)
  1. BYDUREON BCISE [Suspect]
     Active Substance: EXENATIDE
     Route: 058
  2. BYDUREON [Suspect]
     Active Substance: EXENATIDE
     Route: 058

REACTIONS (5)
  - Incorrect dose administered by device [Unknown]
  - Device use issue [Unknown]
  - Device issue [Unknown]
  - Blood glucose increased [Unknown]
  - Device leakage [Unknown]
